FAERS Safety Report 10208299 (Version 1)
Quarter: 2014Q2

REPORT INFORMATION
  Report Type: Spontaneous
  Country: US (occurrence: None)
  Receive Date: 20140529
  Receipt Date: 20140529
  Transmission Date: 20141212
  Serious: Yes (Other)
  Sender: FDA-Public Use
  Company Number: None

PATIENT
  Age: 82 Year
  Sex: Female
  Weight: 79.38 kg

DRUGS (13)
  1. MIRVASO 0.33% [Suspect]
     Indication: ROSACEA
     Dosage: ON FACE
     Route: 061
     Dates: start: 20140515, end: 20140516
  2. METRONIDAZOLE [Suspect]
     Indication: ROSACEA
     Dosage: USE SMALL AMT
     Route: 061
  3. CLONAZEPAM [Concomitant]
  4. DAY PRO [Concomitant]
  5. HYDROCODEINE [Concomitant]
  6. ENDOCET [Concomitant]
  7. MSM [Concomitant]
  8. MULTI VIT [Concomitant]
  9. ALLERGY [Concomitant]
  10. COQ10 [Concomitant]
  11. OCCULAR NUTRITION [Concomitant]
  12. CINNAMOM [Concomitant]
  13. BIOTIN [Concomitant]

REACTIONS (3)
  - Pruritus [None]
  - Skin burning sensation [None]
  - Erythema [None]
